FAERS Safety Report 9045331 (Version 1)
Quarter: 2013Q1

REPORT INFORMATION
  Report Type: Spontaneous
  Country: CZ (occurrence: CZ)
  Receive Date: 20130131
  Receipt Date: 20130131
  Transmission Date: 20140127
  Serious: Yes (Hospitalization)
  Sender: FDA-Public Use
  Company Number: PHHY2013CZ007138

PATIENT
  Age: 11 Month
  Sex: Female

DRUGS (1)
  1. AMOKSIKLAV [Suspect]
     Indication: BRONCHITIS
     Route: 048

REACTIONS (6)
  - Gastroenteritis adenovirus [Recovered/Resolved]
  - Dysbacteriosis [Recovered/Resolved]
  - Diarrhoea [Recovered/Resolved]
  - Vomiting [Recovered/Resolved]
  - Decreased appetite [Recovered/Resolved]
  - Dehydration [Recovered/Resolved]
